FAERS Safety Report 22242374 (Version 1)
Quarter: 2023Q2

REPORT INFORMATION
  Report Type: Spontaneous
  Country: US (occurrence: US)
  Receive Date: 20230422
  Receipt Date: 20230422
  Transmission Date: 20230721
  Serious: Yes (Hospitalization)
  Sender: FDA-Public Use
  Company Number: US-ELI_LILLY_AND_COMPANY-US202304010671

PATIENT
  Age: 77 Year
  Sex: Male

DRUGS (3)
  1. HUMULIN R [Suspect]
     Active Substance: INSULIN HUMAN
     Indication: Hyperglycaemia
     Dosage: 36 U, UNKNOWN
     Route: 058
     Dates: start: 20221004
  2. HUMULIN R [Suspect]
     Active Substance: INSULIN HUMAN
     Dosage: 44 U, EACH MORNING
     Route: 058
     Dates: start: 20221004
  3. HUMULIN R [Suspect]
     Active Substance: INSULIN HUMAN
     Dosage: 26 U, EACH EVENING
     Route: 058
     Dates: start: 20221004

REACTIONS (1)
  - Hypoglycaemia [Recovering/Resolving]

NARRATIVE: CASE EVENT DATE: 20221012
